FAERS Safety Report 21999469 (Version 1)
Quarter: 2023Q1

REPORT INFORMATION
  Report Type: Other
  Country: EG (occurrence: EG)
  Receive Date: 20230216
  Receipt Date: 20230216
  Transmission Date: 20230418
  Serious: Yes (Other)
  Sender: FDA-Public Use
  Company Number: EG-002147023-NVSC2023EG021080

PATIENT
  Sex: Male

DRUGS (5)
  1. LUCENTIS [Suspect]
     Active Substance: RANIBIZUMAB
     Indication: Macular oedema
     Dosage: UNK
     Route: 050
     Dates: start: 20220828, end: 20221225
  2. TAMSULOSIN HYDROCHLORIDE [Concomitant]
     Active Substance: TAMSULOSIN HYDROCHLORIDE
     Indication: Benign prostatic hyperplasia
     Dosage: UNK, QD (ONCE DAILY AT MORNING)
     Dates: start: 2021
  3. FINASTERIDE [Concomitant]
     Active Substance: FINASTERIDE
     Indication: Pollakiuria
     Dosage: UNK, QD (ONCE DAILY AFTER LAUNCH)
     Dates: start: 2021
  4. CHONDROITIN SULFATE (BOVINE)\DIMETHYL SULFONE\GLUCOSAMINE SULFATE [Concomitant]
     Active Substance: CHONDROITIN SULFATE (BOVINE)\DIMETHYL SULFONE\GLUCOSAMINE SULFATE
     Indication: Osteoporosis
     Dosage: UNK UNK, BID (STARTED SINCE 6 MONTHS AGO) (ONE AT MORNING AND THE OTHER AT NOON)
  5. CINNARIZINE [Concomitant]
     Active Substance: CINNARIZINE
     Indication: Dizziness
     Dosage: UNK, QD (STARTED SINCE 2 YEARS AGO) (AT BEDTIME)

REACTIONS (2)
  - Macular oedema [Not Recovered/Not Resolved]
  - Condition aggravated [Not Recovered/Not Resolved]

NARRATIVE: CASE EVENT DATE: 20220828
